FAERS Safety Report 19760649 (Version 3)
Quarter: 2021Q4

REPORT INFORMATION
  Report Type: Report from Study
  Country: US (occurrence: US)
  Receive Date: 20210830
  Receipt Date: 20211113
  Transmission Date: 20220303
  Serious: Yes (Hospitalization, Other)
  Sender: FDA-Public Use
  Company Number: US-NOVARTISPH-NVSC2021US195373

PATIENT
  Age: 61 Year
  Sex: Male

DRUGS (1)
  1. COSENTYX [Suspect]
     Active Substance: SECUKINUMAB
     Indication: Psoriatic arthropathy
     Dosage: 300 MG, QMO (START DATE WAS AT THE END OF 2019-BEGINNING OF 2020)
     Route: 058

REACTIONS (6)
  - COVID-19 [Unknown]
  - Renal cancer [Unknown]
  - Muscular weakness [Unknown]
  - Nasopharyngitis [Unknown]
  - Dizziness postural [Unknown]
  - Disorientation [Unknown]

NARRATIVE: CASE EVENT DATE: 20200701
